FAERS Safety Report 10166700 (Version 4)
Quarter: 2015Q2

REPORT INFORMATION
  Report Type: Spontaneous
  Country: FR (occurrence: None)
  Receive Date: 20140508
  Receipt Date: 20150506
  Transmission Date: 20150821
  Serious: Yes (Death, Hospitalization, Other)
  Sender: FDA-Public Use
  Company Number: ADR-2014-00762

PATIENT
  Age: 46 Year
  Sex: Male

DRUGS (3)
  1. SERESTA (OXAZEPAM) [Suspect]
     Active Substance: OXAZEPAM
     Route: 048
  2. BACLOFEN. [Suspect]
     Active Substance: BACLOFEN
     Dosage: 80MG/DAY
  3. THERALINE (ALIMEMAZINE TARTRATE) [Suspect]
     Active Substance: TRIMEPRAZINE
     Route: 048

REACTIONS (24)
  - Myocardial infarction [None]
  - Hypothermia [None]
  - Multi-organ failure [None]
  - Haemoglobin decreased [None]
  - Cardiac arrest [None]
  - Prothrombin time prolonged [None]
  - Blood sodium increased [None]
  - Blood chloride increased [None]
  - Mydriasis [None]
  - Cardio-respiratory arrest [None]
  - Lactic acidosis [None]
  - Aspartate aminotransferase increased [None]
  - Coma [None]
  - Toxicity to various agents [None]
  - Haemodialysis [None]
  - Hypoxia [None]
  - Overdose [None]
  - Loss of consciousness [None]
  - Sinus arrhythmia [None]
  - Acute kidney injury [None]
  - Anuria [None]
  - Hyperkalaemia [None]
  - Shock [None]
  - Alanine aminotransferase increased [None]

NARRATIVE: CASE EVENT DATE: 20130320
